FAERS Safety Report 8974391 (Version 1)
Quarter: 2012Q4

REPORT INFORMATION
  Report Type: Spontaneous
  Country: US (occurrence: None)
  Receive Date: 20121217
  Receipt Date: 20121217
  Transmission Date: 20130627
  Serious: Yes (Other)
  Sender: FDA-Public Use
  Company Number: None

PATIENT
  Age: 82 Year
  Sex: Male
  Weight: 81.65 kg

DRUGS (1)
  1. CARAC [Suspect]
     Indication: ACTINIC KERATOSIS
     Dosage: One app of carac each day Cutaneous
     Route: 003
     Dates: start: 20120505, end: 20120925

REACTIONS (1)
  - Dyspnoea [None]
